FAERS Safety Report 4830423-8 (Version None)
Quarter: 2005Q4

REPORT INFORMATION
  Report Type: 
  Country: None (occurrence: None)
  Receive Date: 20051114
  Receipt Date: 20050930
  Transmission Date: 20060501
  Serious: Yes (Death)
  Sender: FDA-Public Use
  Company Number: 2005AL003912

PATIENT
  Age: 59 Year

DRUGS (2)
  1. ALPRAZOLAM [Suspect]
     Dosage: PO
     Route: 048
  2. ETHYLENE GLYCOL [Suspect]
     Dosage: PO
     Route: 048

REACTIONS (3)
  - ALCOHOL USE [None]
  - COMPLETED SUICIDE [None]
  - OVERDOSE [None]
